FAERS Safety Report 25672827 (Version 1)
Quarter: 2025Q3

REPORT INFORMATION
  Report Type: Spontaneous
  Country: US (occurrence: US)
  Receive Date: 20250812
  Receipt Date: 20250812
  Transmission Date: 20251020
  Serious: No
  Sender: ANI
  Company Number: US-ANIPHARMA-2025-US-004087

PATIENT
  Age: 55 Year
  Sex: Female

DRUGS (1)
  1. CORTICOTROPIN [Suspect]
     Active Substance: CORTICOTROPIN
     Indication: Rheumatoid arthritis
     Route: 058
     Dates: start: 202412, end: 202504

REACTIONS (4)
  - Pain [Unknown]
  - Erythema [Unknown]
  - Pruritus [Unknown]
  - Blood pressure increased [Unknown]
